FAERS Safety Report 17750444 (Version 5)
Quarter: 2021Q3

REPORT INFORMATION
  Report Type: Report from Study
  Country: DE (occurrence: DE)
  Receive Date: 20200506
  Receipt Date: 20210908
  Transmission Date: 20211014
  Serious: Yes (Hospitalization)
  Sender: FDA-Public Use
  Company Number: NVSC2020DE121177

PATIENT
  Age: 77 Year
  Sex: Male
  Weight: 84 kg

DRUGS (26)
  1. TRAMETINIB [Suspect]
     Active Substance: TRAMETINIB
     Dosage: 2 MG
     Route: 065
     Dates: start: 20200309
  2. TRAMETINIB [Suspect]
     Active Substance: TRAMETINIB
     Dosage: 2 MG
     Route: 048
     Dates: start: 20200512, end: 20200623
  3. TRAMETINIB [Suspect]
     Active Substance: TRAMETINIB
     Dosage: 1.5 MG
     Route: 048
     Dates: start: 20200512, end: 20201217
  4. DABRAFENIB [Suspect]
     Active Substance: DABRAFENIB
     Indication: MALIGNANT MELANOMA
     Dosage: 300 MG
     Route: 065
     Dates: start: 20200122, end: 20200304
  5. TRAMETINIB [Suspect]
     Active Substance: TRAMETINIB
     Dosage: 2 MG
     Route: 048
     Dates: start: 20200127
  6. TRAMETINIB [Suspect]
     Active Substance: TRAMETINIB
     Dosage: 1.5 MG
     Route: 048
     Dates: start: 20200512, end: 20210210
  7. TRAMETINIB [Suspect]
     Active Substance: TRAMETINIB
     Dosage: 2 MG
     Route: 048
     Dates: start: 20200512, end: 20200618
  8. AMPHO?MORONAL [Concomitant]
     Active Substance: AMPHOTERICIN B
     Indication: PRODUCT USED FOR UNKNOWN INDICATION
     Dosage: UNK
     Route: 065
     Dates: start: 20200201
  9. CEFUROXIME. [Concomitant]
     Active Substance: CEFUROXIME
     Indication: PRODUCT USED FOR UNKNOWN INDICATION
     Dosage: UNK
     Route: 065
     Dates: start: 20200201, end: 20200225
  10. TRAMETINIB [Suspect]
     Active Substance: TRAMETINIB
     Dosage: 2 MG
     Route: 065
     Dates: start: 20200122, end: 20200210
  11. TRAMETINIB [Suspect]
     Active Substance: TRAMETINIB
     Dosage: 2 MG
     Route: 048
     Dates: start: 20200122, end: 20201013
  12. TRAMETINIB [Suspect]
     Active Substance: TRAMETINIB
     Dosage: 1.5 MG
     Route: 048
     Dates: start: 20200512, end: 20210113
  13. PERFALGAN [Concomitant]
     Active Substance: ACETAMINOPHEN
     Indication: PRODUCT USED FOR UNKNOWN INDICATION
     Dosage: UNK
     Route: 065
     Dates: start: 20200210
  14. DABRAFENIB [Suspect]
     Active Substance: DABRAFENIB
     Dosage: 200 MG
     Route: 065
     Dates: start: 20200122, end: 20201013
  15. DABRAFENIB [Suspect]
     Active Substance: DABRAFENIB
     Dosage: 300 MG
     Route: 048
     Dates: start: 20200512, end: 20201021
  16. TRAMETINIB [Suspect]
     Active Substance: TRAMETINIB
     Dosage: 2 MG
     Route: 048
     Dates: start: 20200122, end: 20200609
  17. MEROPENEM. [Concomitant]
     Active Substance: MEROPENEM
     Indication: PRODUCT USED FOR UNKNOWN INDICATION
     Dosage: UNK
     Route: 065
     Dates: start: 20200201, end: 20200225
  18. DABRAFENIB [Suspect]
     Active Substance: DABRAFENIB
     Dosage: 300 MG
     Route: 065
     Dates: start: 20200309
  19. DABRAFENIB [Suspect]
     Active Substance: DABRAFENIB
     Dosage: 100 MG
     Route: 065
     Dates: start: 20200122
  20. TRAMETINIB [Suspect]
     Active Substance: TRAMETINIB
     Dosage: 1.5 MG
     Route: 048
     Dates: start: 20200512, end: 20210107
  21. TRAMETINIB [Suspect]
     Active Substance: TRAMETINIB
     Dosage: 2 MG
     Route: 048
     Dates: start: 20200512, end: 20201021
  22. TRAMETINIB [Suspect]
     Active Substance: TRAMETINIB
     Indication: MALIGNANT MELANOMA
     Dosage: 2 MG
     Route: 048
     Dates: start: 20191203
  23. TRAMETINIB [Suspect]
     Active Substance: TRAMETINIB
     Dosage: 2 MG
     Route: 048
     Dates: start: 20200122, end: 20201206
  24. TRAMETINIB [Suspect]
     Active Substance: TRAMETINIB
     Dosage: 2 MG
     Route: 048
     Dates: start: 20200122, end: 20201123
  25. TRAMETINIB [Suspect]
     Active Substance: TRAMETINIB
     Dosage: 1.5 MG
     Route: 048
     Dates: start: 20200512, end: 20210127
  26. RIVAROXABAN [Concomitant]
     Active Substance: RIVAROXABAN
     Indication: PRODUCT USED FOR UNKNOWN INDICATION
     Dosage: UNK
     Route: 065
     Dates: start: 20200201, end: 20200225

REACTIONS (25)
  - Transient acantholytic dermatosis [Unknown]
  - Fatigue [Recovered/Resolved]
  - Pyrexia [Recovered/Resolved]
  - Pyrexia [Recovered/Resolved]
  - Diarrhoea [Unknown]
  - Blood creatine phosphokinase increased [Recovered/Resolved]
  - Atrial fibrillation [Unknown]
  - Pyrexia [Recovered/Resolved]
  - Pyrexia [Recovered/Resolved]
  - Oral candidiasis [Unknown]
  - Fatigue [Not Recovered/Not Resolved]
  - Blood creatine phosphokinase increased [Recovered/Resolved]
  - Constipation [Recovered/Resolved]
  - Pneumonia [Unknown]
  - Dry mouth [Recovered/Resolved]
  - Blood creatine phosphokinase increased [Recovered/Resolved]
  - Pyrexia [Not Recovered/Not Resolved]
  - Muscle spasms [Recovered/Resolved]
  - Pyrexia [Recovered/Resolved]
  - Blood creatine phosphokinase increased [Recovered/Resolved]
  - Blood creatine phosphokinase increased [Recovered/Resolved]
  - Blood creatine phosphokinase increased [Recovered/Resolved]
  - Blood creatine phosphokinase increased [Recovered/Resolved]
  - Hypokalaemia [Unknown]
  - Blood creatine phosphokinase increased [Not Recovered/Not Resolved]

NARRATIVE: CASE EVENT DATE: 20200210
